FAERS Safety Report 6582282-3 (Version None)
Quarter: 2010Q1

REPORT INFORMATION
  Report Type: 
  Country: None (occurrence: None)
  Receive Date: 20100212
  Receipt Date: 20100212
  Transmission Date: 20100710
  Serious: Yes (Other)
  Sender: FDA-Public Use
  Company Number: None

PATIENT
  Age: 57 Year
  Sex: Female
  Weight: 111.1 kg

DRUGS (1)
  1. METHADONE [Suspect]
     Indication: PAIN
     Dosage: 5 MG BID PO
     Route: 048
     Dates: start: 20091102, end: 20091103

REACTIONS (1)
  - RASH [None]
